FAERS Safety Report 15535885 (Version 7)
Quarter: 2019Q1

REPORT INFORMATION
  Report Type: Spontaneous
  Country: US (occurrence: US)
  Receive Date: 20181022
  Receipt Date: 20190329
  Transmission Date: 20190417
  Serious: Yes (Other)
  Sender: FDA-Public Use
  Company Number: US-PFIZER INC-2018423820

PATIENT
  Age: 87 Year
  Sex: Female
  Weight: 86.17 kg

DRUGS (3)
  1. NORVASC [Suspect]
     Active Substance: AMLODIPINE BESYLATE
     Dosage: 2.5 MG (SOMETIMES I ONLY TAKE ONE HALF OF MY PILL OF NORVASC)
  2. NORVASC [Suspect]
     Active Substance: AMLODIPINE BESYLATE
     Indication: HYPERTENSION
     Dosage: 5 MG, 1X/DAY
     Route: 048
  3. NORVASC [Suspect]
     Active Substance: AMLODIPINE BESYLATE
     Dosage: 10 MG, UNK
     Dates: start: 2006

REACTIONS (8)
  - Eye disorder [Unknown]
  - Viral infection [Unknown]
  - Weight increased [Unknown]
  - Body height decreased [Unknown]
  - Blood pressure inadequately controlled [Not Recovered/Not Resolved]
  - Asthenia [Unknown]
  - Intentional product misuse [Unknown]
  - Atrioventricular block [Unknown]
